FAERS Safety Report 8125194-6 (Version None)
Quarter: 2012Q1

REPORT INFORMATION
  Report Type: 
  Country: None (occurrence: None)
  Receive Date: 20120206
  Receipt Date: 20120121
  Transmission Date: 20120608
  Serious: Yes (Life-Threatening)
  Sender: FDA-Public Use
  Company Number: AUR-APL-2010-02876

PATIENT
  Sex: Male

DRUGS (6)
  1. HYDROXYCHLOROQUINE (HYDROXYCGLOROQUINE) [Suspect]
     Indication: SYSTEMIC LUPUS ERYTHEMATOSUS
     Dosage: (200 MG), ORAL
     Route: 048
     Dates: start: 20100101
  2. ATENOLOL [Suspect]
     Indication: PRODUCT USED FOR UNKNOWN INDICATION
     Dosage: (25 MG), ORAL
     Route: 048
     Dates: start: 20011001
  3. ROSUVASTATIN [Suspect]
     Indication: HYPERCHOLESTEROLAEMIA
     Dosage: (10 MG), ORAL
     Route: 048
     Dates: start: 20090101
  4. PREDNISOLONE [Suspect]
     Indication: SYSTEMIC LUPUS ERYTHEMATOSUS
     Dosage: (5 MG), ORAL
     Route: 048
     Dates: start: 20010101
  5. DICLOFENAC SODIUM [Suspect]
     Indication: PAIN
     Dosage: (50 MG), ORAL
     Route: 048
  6. RAMIPRIL [Suspect]
     Indication: PRODUCT USED FOR UNKNOWN INDICATION
     Dosage: ORAL
     Route: 048
     Dates: start: 20061001, end: 20101022

REACTIONS (1)
  - ANGIOEDEMA [None]
